FAERS Safety Report 6199561 (Version 18)
Quarter: 2012Q4

REPORT INFORMATION
  Report Type: 
  Country: US (occurrence: US)
  Receive Date: 20061221
  Receipt Date: 20120914
  Transmission Date: 20130627
  Serious: Yes (Hospitalization, Other)
  Sender: FDA-Public Use
  Company Number: PHEH2006US15272

PATIENT
  Age: 57 Year
  Sex: Male

DRUGS (31)
  1. AREDIA [Suspect]
     Dosage: 90 mg, QMO
     Route: 042
     Dates: start: 20040813, end: 20051021
  2. ZOMETA [Suspect]
     Indication: MULTIPLE MYELOMA
     Dosage: 4 mg, QMO
     Route: 042
     Dates: start: 20030821, end: 20031209
  3. AMBIEN [Concomitant]
  4. NEURONTIN [Concomitant]
  5. AMITRIPTYLINE [Concomitant]
  6. TRAZODONE [Concomitant]
  7. DIOVAN [Concomitant]
     Indication: HYPERTENSION
  8. PERCOCET [Concomitant]
  9. FIORICET [Concomitant]
  10. NORVASC                                 /DEN/ [Concomitant]
  11. AMOXICILLIN [Concomitant]
  12. LIPITOR                                 /NET/ [Concomitant]
  13. KLONOPIN [Concomitant]
  14. HYDROCHLOROTHIAZIDE [Concomitant]
  15. CLONIDINE [Concomitant]
  16. FERROUS SULFATE [Concomitant]
  17. COLACE [Concomitant]
  18. MELPHALAN [Concomitant]
  19. LISINOPRIL [Concomitant]
  20. ENDOCET [Concomitant]
  21. DILTIAZEM [Concomitant]
  22. CIPROFLOXACIN [Concomitant]
  23. PROCARDIA [Concomitant]
     Dosage: 60 mg, UNK
  24. ASPIRIN [Concomitant]
     Dosage: 325 mg, UNK
  25. ACYCLOVIR [Concomitant]
  26. AMPICILLIN [Concomitant]
  27. CEFTRIAXONE [Concomitant]
  28. VANCOMYCIN [Concomitant]
  29. ZOSYN [Concomitant]
  30. CEFEPIME [Concomitant]
  31. LEVAQUIN [Concomitant]
     Dosage: 500 mg, UNK

REACTIONS (57)
  - Cerebrovascular accident [Unknown]
  - Muscular weakness [Unknown]
  - Deep vein thrombosis [Recovering/Resolving]
  - Tenderness [Unknown]
  - Swelling [Unknown]
  - Cardiac valve vegetation [Unknown]
  - Osteonecrosis of jaw [Unknown]
  - Osteomyelitis [Unknown]
  - General physical health deterioration [Unknown]
  - Pain [Unknown]
  - Anxiety [Unknown]
  - Tooth infection [Unknown]
  - Primary sequestrum [Unknown]
  - Decreased interest [Unknown]
  - Meniscus injury [Unknown]
  - Oedema peripheral [Unknown]
  - Joint range of motion decreased [Unknown]
  - Post concussion syndrome [Unknown]
  - Neuritis [Unknown]
  - Osteoarthritis [Unknown]
  - Post thrombotic syndrome [Unknown]
  - Anaemia [Unknown]
  - Hypertension [Unknown]
  - Hyponatraemia [Unknown]
  - VIIth nerve paralysis [Unknown]
  - Cellulitis [Unknown]
  - Scoliosis [Unknown]
  - Cerebral infarction [Unknown]
  - Cerebral arteriosclerosis [Unknown]
  - Left ventricular hypertrophy [Unknown]
  - Acute polyneuropathy [Unknown]
  - Ataxia [Unknown]
  - Waldenstrom^s macroglobulinaemia [Unknown]
  - Urinary tract infection [Unknown]
  - Hypergammaglobulinaemia [Unknown]
  - Meningitis aseptic [Unknown]
  - Hyperviscosity syndrome [Unknown]
  - Renal failure chronic [Unknown]
  - Hypokalaemia [Unknown]
  - Joint swelling [Unknown]
  - Arthralgia [Unknown]
  - Gait disturbance [Unknown]
  - Sinus tarsi syndrome [Unknown]
  - Bursitis [Unknown]
  - Tendonitis [Unknown]
  - Fasciitis [Unknown]
  - Oropharyngeal pain [Unknown]
  - Subcutaneous abscess [Unknown]
  - Blood alkaline phosphatase increased [Unknown]
  - Intervertebral disc space narrowing [Unknown]
  - Intervertebral disc degeneration [Unknown]
  - Blood glucose increased [Unknown]
  - Tricuspid valve incompetence [Unknown]
  - Sinus bradycardia [Unknown]
  - Endocarditis bacterial [Unknown]
  - Monoplegia [Unknown]
  - Epistaxis [Unknown]
